FAERS Safety Report 25462433 (Version 1)
Quarter: 2025Q2

REPORT INFORMATION
  Report Type: Spontaneous
  Country: US (occurrence: None)
  Receive Date: 20250620
  Receipt Date: 20250620
  Transmission Date: 20250717
  Serious: No
  Sender: FDA-CTU
  Company Number: None

PATIENT

DRUGS (2)
  1. SEMAGLUTIDE [Suspect]
     Active Substance: SEMAGLUTIDE
  2. STERILE WATER [Suspect]
     Active Substance: WATER

REACTIONS (11)
  - Nausea [None]
  - Vomiting [None]
  - Incorrect dose administered [None]
  - Product prescribing issue [None]
  - Product label issue [None]
  - Physical product label issue [None]
  - Product packaging issue [None]
  - Manufacturing product shipping issue [None]
  - Manufacturing production issue [None]
  - Packaging design issue [None]
  - Product confusion [None]
